FAERS Safety Report 7311499-5 (Version None)
Quarter: 2011Q1

REPORT INFORMATION
  Report Type: 
  Country: None (occurrence: None)
  Receive Date: 20110224
  Receipt Date: 20110215
  Transmission Date: 20110831
  Serious: Yes (Hospitalization)
  Sender: FDA-Public Use
  Company Number: PHHY2010FR52831

PATIENT
  Sex: Female
  Weight: 60.5 kg

DRUGS (4)
  1. NEORAL [Suspect]
     Dosage: 140 MG DAILY
     Route: 048
     Dates: start: 20071221
  2. NEORAL [Suspect]
     Indication: PROPHYLAXIS AGAINST TRANSPLANT REJECTION
     Dosage: 130 MG DAILY
     Route: 048
     Dates: start: 20091231
  3. IMUREL [Concomitant]
     Indication: RENAL TRANSPLANT
     Dosage: 75 MG
     Dates: start: 20090723
  4. NEORAL [Suspect]
     Dosage: 140 MG, QD
     Route: 048
     Dates: start: 20100316

REACTIONS (4)
  - PROTEINURIA [None]
  - PRE-ECLAMPSIA [None]
  - HYPERTENSION [None]
  - DRUG EXPOSURE DURING PREGNANCY [None]
